FAERS Safety Report 7495870-7 (Version None)
Quarter: 2011Q2

REPORT INFORMATION
  Report Type: 
  Country: None (occurrence: None)
  Receive Date: 20110523
  Receipt Date: 20110512
  Transmission Date: 20111010
  Serious: Yes (Hospitalization)
  Sender: FDA-Public Use
  Company Number: NL-AMGEN-NLDSP2011020550

PATIENT
  Age: 38 Year
  Sex: Female

DRUGS (4)
  1. METOPROLOL SUCCINATE [Concomitant]
     Dosage: UNK
  2. ENBREL [Suspect]
     Indication: PSORIATIC ARTHROPATHY
     Dosage: 50 MG, WEEKLY
     Dates: start: 20110408
  3. ARCOXIA [Concomitant]
     Dosage: UNK
  4. LOSEC                              /00661201/ [Concomitant]
     Dosage: UNK

REACTIONS (2)
  - BLEPHAROSPASM [None]
  - ABDOMINAL PAIN [None]
